FAERS Safety Report 7914918-6 (Version None)
Quarter: 2011Q4

REPORT INFORMATION
  Report Type: 
  Country: None (occurrence: None)
  Receive Date: 20111115
  Receipt Date: 20111111
  Transmission Date: 20120403
  Serious: No
  Sender: FDA-Public Use
  Company Number: US-PFIZER INC-2011277272

PATIENT
  Sex: Female
  Weight: 61.224 kg

DRUGS (1)
  1. LYRICA [Suspect]
     Dosage: 50 MG, UNK
     Route: 048
     Dates: start: 20111001, end: 20111101

REACTIONS (1)
  - RASH [None]
